FAERS Safety Report 8976111 (Version 5)
Quarter: 2013Q3

REPORT INFORMATION
  Report Type: Report from Study
  Country: US (occurrence: US)
  Receive Date: 20121220
  Receipt Date: 20130723
  Transmission Date: 20140515
  Serious: Yes (Hospitalization)
  Sender: FDA-Public Use
  Company Number: US-PFIZER INC-2012311871

PATIENT
  Age: 45 Year
  Sex: Female
  Weight: 88.6 kg

DRUGS (34)
  1. BLINDED CELECOXIB [Suspect]
     Indication: OSTEOARTHRITIS
     Dosage: LOW, TID
     Route: 048
     Dates: start: 20121107, end: 20121109
  2. BLINDED IBUPROFEN [Suspect]
     Indication: OSTEOARTHRITIS
     Dosage: LOW, TID
     Route: 048
     Dates: start: 20121107, end: 20121109
  3. BLINDED IBUPROFEN [Suspect]
     Indication: OSTEOARTHRITIS
     Dosage: LOW, TID
     Route: 048
     Dates: start: 20121107, end: 20121109
  4. BLINDED IBUPROFEN [Suspect]
     Indication: OSTEOARTHRITIS
     Dosage: LOW, TID
     Route: 048
     Dates: start: 20121107, end: 20121109
  5. BLINDED NAPROXEN [Suspect]
     Indication: OSTEOARTHRITIS
     Dosage: LOW, TID
     Route: 048
     Dates: start: 20121107, end: 20121109
  6. BLINDED NAPROXEN [Suspect]
     Indication: OSTEOARTHRITIS
     Dosage: LOW, TID
     Route: 048
     Dates: start: 20121107, end: 20121109
  7. BLINDED NAPROXEN [Suspect]
     Indication: OSTEOARTHRITIS
     Dosage: LOW, TID
     Route: 048
     Dates: start: 20121107, end: 20121109
  8. BLINDED PLACEBO [Suspect]
     Indication: OSTEOARTHRITIS
     Dosage: LOW, TID
     Route: 048
     Dates: start: 20121107, end: 20121109
  9. MORPHINE SULFATE [Suspect]
     Indication: BACK PAIN
     Dosage: 15 MG, 2X/DAY
     Route: 048
     Dates: start: 20120225, end: 20121109
  10. MORPHINE SULFATE [Suspect]
     Indication: NECK PAIN
  11. MORPHINE SULFATE [Suspect]
     Indication: ARTHRALGIA
  12. VISTARIL [Suspect]
     Indication: NAUSEA
     Dosage: 25 MG, BID
     Route: 048
     Dates: start: 20121018, end: 20121109
  13. VISTARIL [Suspect]
     Indication: VOMITING
  14. LORTAB [Suspect]
     Indication: BACK PAIN
     Dosage: 7.5MG/500MG, BID
     Route: 048
     Dates: start: 20120225, end: 20121109
  15. LORTAB [Suspect]
     Indication: NECK PAIN
  16. LORTAB [Suspect]
     Indication: ARTHRALGIA
  17. KLONOPIN [Suspect]
     Indication: INSOMNIA
     Dosage: 0.5 MG, BID
     Route: 048
     Dates: start: 20120224, end: 20121109
  18. KLONOPIN [Suspect]
     Indication: ANXIETY
  19. VOLTAREN [Concomitant]
     Indication: INTERVERTEBRAL DISC DEGENERATION
     Dosage: UNK
     Dates: start: 20120924, end: 20121106
  20. VOLTAREN [Concomitant]
     Indication: OSTEOARTHRITIS
  21. VOLTAREN [Concomitant]
     Indication: ARTHRITIS
  22. NEXIUM [Concomitant]
     Indication: PROPHYLAXIS
     Dosage: 20 MG, QD
     Route: 048
     Dates: start: 20121107, end: 20121109
  23. ABILIFY [Concomitant]
     Indication: BIPOLAR DISORDER
     Dosage: UNK
     Dates: start: 20110208
  24. ABILIFY [Concomitant]
     Indication: DEPRESSION
  25. CELEXA [Concomitant]
     Indication: DEPRESSION
     Dosage: UNK
     Dates: start: 20111115
  26. ATENOLOL [Concomitant]
     Indication: HYPERTENSION
     Dosage: UNK
     Dates: start: 20110718
  27. VENTOLIN HFA [Concomitant]
     Indication: CHRONIC OBSTRUCTIVE PULMONARY DISEASE
     Dosage: UNK
     Dates: start: 20110613, end: 20121109
  28. ROBAXIN [Concomitant]
     Indication: NECK PAIN
     Dosage: UNK
     Dates: start: 20110208, end: 20121109
  29. ROBAXIN [Concomitant]
     Indication: BACK PAIN
  30. ROBAXIN [Concomitant]
     Indication: ARTHRALGIA
  31. PRILOSEC [Concomitant]
     Indication: GASTROOESOPHAGEAL REFLUX DISEASE
     Dosage: UNK
     Dates: start: 20120706, end: 20121106
  32. MOBIC [Concomitant]
     Indication: INTERVERTEBRAL DISC DEGENERATION
     Dosage: UNK
     Dates: start: 20120924, end: 20121106
  33. MOBIC [Concomitant]
     Indication: OSTEOARTHRITIS
  34. MOBIC [Concomitant]
     Indication: ARTHRITIS

REACTIONS (3)
  - Overdose [Recovered/Resolved]
  - Mental status changes [Recovered/Resolved]
  - Respiratory disorder [Recovered/Resolved]
